FAERS Safety Report 10155829 (Version 2)
Quarter: 2014Q2

REPORT INFORMATION
  Report Type: Spontaneous
  Country: JP (occurrence: JP)
  Receive Date: 20140506
  Receipt Date: 20140506
  Transmission Date: 20141212
  Serious: Yes (Hospitalization)
  Sender: FDA-Public Use
  Company Number: JP-PFIZER INC-2014107432

PATIENT
  Age: 72 Year
  Sex: Male

DRUGS (1)
  1. TOVIAZ [Suspect]
     Dosage: UNKNOWN DOSE, ONCE DAILY
     Route: 048

REACTIONS (1)
  - Coronary artery disease [Unknown]
